FAERS Safety Report 25385525 (Version 3)
Quarter: 2025Q3

REPORT INFORMATION
  Report Type: Spontaneous
  Country: AR (occurrence: AR)
  Receive Date: 20250602
  Receipt Date: 20250701
  Transmission Date: 20251020
  Serious: Yes (Hospitalization, Other)
  Sender: NOVARTIS
  Company Number: AR-002147023-NVSC2025AR079949

PATIENT
  Age: 60 Year
  Sex: Female

DRUGS (7)
  1. KISQALI [Suspect]
     Active Substance: RIBOCICLIB SUCCINATE
     Indication: Breast cancer stage IV
     Dosage: 200 MG, QD (STOPPED 3 MONTHS AGO)
     Route: 065
     Dates: start: 202402, end: 202402
  2. FULVESTRANT [Suspect]
     Active Substance: FULVESTRANT
     Indication: Breast cancer stage IV
     Route: 065
     Dates: start: 2024
  3. LETROZOLE [Suspect]
     Active Substance: LETROZOLE
     Indication: Product used for unknown indication
     Route: 065
  4. LEVOTHYROXINE [Concomitant]
     Active Substance: LEVOTHYROXINE
     Indication: Product used for unknown indication
     Route: 065
  5. RISPERIDONE [Concomitant]
     Active Substance: RISPERIDONE
     Indication: Product used for unknown indication
     Route: 065
  6. LAMOTRIGINE [Concomitant]
     Active Substance: LAMOTRIGINE
     Indication: Product used for unknown indication
     Route: 065
  7. FLUOXETINE [Concomitant]
     Active Substance: FLUOXETINE HYDROCHLORIDE
     Indication: Product used for unknown indication
     Route: 065

REACTIONS (46)
  - Renal disorder [Unknown]
  - Sepsis [Unknown]
  - Carbohydrate antigen 15-3 increased [Unknown]
  - Sepsis [Unknown]
  - Hyperbilirubinaemia [Unknown]
  - Hypoalbuminaemia [Unknown]
  - Aspartate aminotransferase increased [Unknown]
  - Alanine aminotransferase increased [Unknown]
  - Blood alkaline phosphatase increased [Unknown]
  - Acute kidney injury [Unknown]
  - Coagulation test [Unknown]
  - Hydronephrosis [Unknown]
  - Ascites [Unknown]
  - Hypotension [Unknown]
  - Haematocrit [Unknown]
  - Pyrexia [Unknown]
  - Haemoglobin [Unknown]
  - Mean cell volume [Unknown]
  - White blood cell count [Unknown]
  - Blood urea increased [Unknown]
  - Blood creatinine increased [Unknown]
  - Blood sodium [Unknown]
  - Abdominal pain [Unknown]
  - Fatigue [Unknown]
  - Blood glucose increased [Unknown]
  - Chromaturia [Unknown]
  - Jaundice [Recovered/Resolved]
  - Gamma-glutamyltransferase increased [Unknown]
  - Blood lactate dehydrogenase increased [Unknown]
  - Transferrin saturation decreased [Unknown]
  - Gallbladder disorder [Unknown]
  - Urinary sediment [Unknown]
  - Pyuria [Unknown]
  - Culture [Unknown]
  - Protein total increased [Unknown]
  - Haemorrhagic ascites [Unknown]
  - Urinary tract infection [Unknown]
  - Escherichia bacteraemia [Unknown]
  - Serum ferritin increased [Unknown]
  - Liver function test abnormal [Recovered/Resolved]
  - Positron emission tomogram abnormal [Unknown]
  - Malignant neoplasm progression [Unknown]
  - Breast cancer metastatic [Unknown]
  - Nausea [Unknown]
  - Hyperglycaemia [Unknown]
  - Vomiting [Unknown]

NARRATIVE: CASE EVENT DATE: 20240201
